FAERS Safety Report 10940043 (Version 2)
Quarter: 2015Q2

REPORT INFORMATION
  Report Type: Spontaneous
  Country: US (occurrence: US)
  Receive Date: 20150322
  Receipt Date: 20150525
  Transmission Date: 20150821
  Serious: No
  Sender: FDA-Public Use
  Company Number: US-JNJFOC-20141209389

PATIENT
  Age: 73 Year
  Sex: Female
  Weight: 86.18 kg

DRUGS (2)
  1. NUCYNTA ER [Suspect]
     Active Substance: TAPENTADOL HYDROCHLORIDE
     Indication: OSTEOPOROSIS
     Route: 048
     Dates: start: 201412
  2. NUCYNTA ER [Suspect]
     Active Substance: TAPENTADOL HYDROCHLORIDE
     Indication: OSTEOPOROSIS
     Route: 048
     Dates: start: 20141204

REACTIONS (1)
  - Therapy change [Unknown]

NARRATIVE: CASE EVENT DATE: 201412
